FAERS Safety Report 20825334 (Version 1)
Quarter: 2022Q2

REPORT INFORMATION
  Report Type: Spontaneous
  Country: US (occurrence: US)
  Receive Date: 20220513
  Receipt Date: 20220513
  Transmission Date: 20220721
  Serious: Yes (Hospitalization, Other)
  Sender: FDA-Public Use
  Company Number: US-AMGEN-USASP2022079850

PATIENT
  Age: 82 Year
  Sex: Male

DRUGS (2)
  1. BLINCYTO [Suspect]
     Active Substance: BLINATUMOMAB
     Indication: Product used for unknown indication
     Dosage: 9 MICROGRAM, QD
     Route: 065
     Dates: start: 20220426, end: 20220427
  2. BLINCYTO [Suspect]
     Active Substance: BLINATUMOMAB
     Dosage: 9 MICROGRAM, QD
     Route: 065
     Dates: start: 20220429, end: 20220502

REACTIONS (5)
  - Hypoxia [Unknown]
  - Blood glucose increased [Unknown]
  - Pyrexia [Recovered/Resolved]
  - Anaemia [Unknown]
  - Tremor [Unknown]

NARRATIVE: CASE EVENT DATE: 20220101
